FAERS Safety Report 8289035-9 (Version None)
Quarter: 2012Q2

REPORT INFORMATION
  Report Type: 
  Country: None (occurrence: None)
  Receive Date: 20120417
  Receipt Date: 20120410
  Transmission Date: 20120825
  Serious: Yes (Hospitalization)
  Sender: FDA-Public Use
  Company Number: NL-UCBSA-055082

PATIENT
  Age: 59 Year
  Sex: Female

DRUGS (9)
  1. CYCLOSPORINE [Concomitant]
  2. RHINOCORT [Concomitant]
  3. CIMZIA [Suspect]
     Indication: RHEUMATOID ARTHRITIS
     Route: 058
     Dates: start: 20111215, end: 20120209
  4. NAPROXEN [Concomitant]
  5. KLIOGEST [Concomitant]
  6. FLUTICASONE PROPIONATE/SALMETEROL [Concomitant]
  7. DESLORATADINE [Concomitant]
  8. PRILOSEC [Concomitant]
  9. PRILOSEC [Concomitant]

REACTIONS (3)
  - EAR INFECTION [None]
  - PNEUMONIA [None]
  - INFLUENZA [None]
